FAERS Safety Report 9306819 (Version 1)
Quarter: 2013Q2

REPORT INFORMATION
  Report Type: Spontaneous
  Country: US (occurrence: US)
  Receive Date: 20130523
  Receipt Date: 20130523
  Transmission Date: 20140414
  Serious: Yes (Other)
  Sender: FDA-Public Use
  Company Number: US-PFIZER INC-2013153348

PATIENT
  Age: 4 Year
  Sex: Male
  Weight: 38.1 kg

DRUGS (4)
  1. BENEFIX [Suspect]
     Indication: HAEMOPHILIA
     Dosage: UNK
  2. BENEFIX [Suspect]
     Dosage: 3500 IU, 2X/DAY
     Dates: start: 201206, end: 201304
  3. NOVOSEVEN [Concomitant]
     Indication: HYPERSENSITIVITY
     Dosage: 5 MG, AS NEEDED
  4. CLARITIN [Concomitant]
     Indication: SEASONAL ALLERGY
     Dosage: UNK, (5 OR 10 MG)AS NEEDED

REACTIONS (1)
  - Anaphylactic reaction [Recovered/Resolved]
